FAERS Safety Report 4467307-3 (Version None)
Quarter: 2004Q4

REPORT INFORMATION
  Report Type: 
  Country: None (occurrence: None)
  Receive Date: 20041006
  Receipt Date: 20040927
  Transmission Date: 20050328
  Serious: Yes (Death, Hospitalization)
  Sender: FDA-Public Use
  Company Number: SE-GLAXOSMITHKLINE-B0346892A

PATIENT
  Age: 89 Year
  Sex: Male

DRUGS (5)
  1. ZINACEF [Suspect]
     Dosage: 2.2MG UNKNOWN
     Route: 042
     Dates: start: 20040518, end: 20040520
  2. DALACIN [Suspect]
     Dosage: 900MG PER DAY
     Route: 048
     Dates: start: 20040602, end: 20040621
  3. DICLOCIL [Suspect]
     Dosage: 6MG PER DAY
     Route: 042
     Dates: start: 20040520, end: 20040527
  4. HERACILLIN [Suspect]
     Dosage: 1500MG PER DAY
     Route: 048
     Dates: start: 20040527, end: 20040602
  5. NEBCINA [Suspect]
     Route: 042
     Dates: start: 20040501, end: 20040501

REACTIONS (13)
  - ADVERSE DRUG REACTION [None]
  - CLOSTRIDIAL INFECTION [None]
  - CLOSTRIDIUM COLITIS [None]
  - DYSPNOEA [None]
  - ESCHERICHIA INFECTION [None]
  - GENERAL PHYSICAL HEALTH DETERIORATION [None]
  - LOOSE STOOLS [None]
  - ORGAN FAILURE [None]
  - PAIN [None]
  - PULMONARY OEDEMA [None]
  - PYREXIA [None]
  - SPLENIC INFECTION [None]
  - URINE OUTPUT DECREASED [None]
